FAERS Safety Report 6856598-7 (Version None)
Quarter: 2010Q3

REPORT INFORMATION
  Report Type: 
  Country: None (occurrence: None)
  Receive Date: 20100719
  Receipt Date: 20100708
  Transmission Date: 20110219
  Serious: No
  Sender: FDA-Public Use
  Company Number: US-JNJFOC-20100703280

PATIENT
  Sex: Male
  Weight: 81.65 kg

DRUGS (5)
  1. SANDOZ FENTANYL TRANSDERMAL SYSTEM [Suspect]
     Indication: PAIN
     Route: 062
  2. SANDOZ FENTANYL TRANSDERMAL SYSTEM [Suspect]
     Route: 062
  3. FENTANYL-100 [Suspect]
     Indication: PAIN
     Route: 062
  4. CADUET [Concomitant]
     Indication: BLOOD CHOLESTEROL INCREASED
     Dosage: DOSE: 5/80MG
     Route: 048
  5. CADUET [Concomitant]
     Indication: HYPERTENSION
     Dosage: DOSE: 5/80MG
     Route: 048

REACTIONS (4)
  - BLOOD CHOLESTEROL INCREASED [None]
  - DRUG INEFFECTIVE [None]
  - DRUG PRESCRIBING ERROR [None]
  - HYPERTENSION [None]
